FAERS Safety Report 6186949-0 (Version None)
Quarter: 2009Q2

REPORT INFORMATION
  Report Type: 
  Country: None (occurrence: None)
  Receive Date: 20090508
  Receipt Date: 20090508
  Transmission Date: 20091009
  Serious: Yes (Disabling)
  Sender: FDA-Public Use
  Company Number: None

PATIENT
  Age: 21 Year
  Sex: Female
  Weight: 63.5036 kg

DRUGS (2)
  1. LEVAQUIN [Suspect]
     Indication: THROMBOPHLEBITIS SEPTIC
     Dosage: DAILY, 3 MONTHS IV DRIP
     Route: 041
     Dates: start: 20070409, end: 20070801
  2. CIPRO [Suspect]
     Indication: KIDNEY INFECTION
     Dosage: 500MG BID PO
     Route: 048

REACTIONS (1)
  - LIGAMENT RUPTURE [None]
